FAERS Safety Report 7372279-8 (Version None)
Quarter: 2011Q1

REPORT INFORMATION
  Report Type: 
  Country: None (occurrence: None)
  Receive Date: 20110324
  Receipt Date: 20110317
  Transmission Date: 20110831
  Serious: Yes (Other)
  Sender: FDA-Public Use
  Company Number: A0918689A

PATIENT
  Age: 68 Year
  Sex: Female

DRUGS (6)
  1. BYSTOLIC [Suspect]
     Route: 065
  2. COMBIVENT [Concomitant]
  3. ADVAIR DISKUS 100/50 [Suspect]
     Indication: CHRONIC OBSTRUCTIVE PULMONARY DISEASE
     Dosage: 1PUFF TWICE PER DAY
     Route: 055
     Dates: start: 20110215, end: 20110301
  4. ALBUTEROL [Suspect]
     Indication: CHRONIC OBSTRUCTIVE PULMONARY DISEASE
     Route: 055
  5. SPIRIVA [Concomitant]
  6. DIOVAN [Concomitant]

REACTIONS (4)
  - MYDRIASIS [None]
  - RESPIRATORY DISTRESS [None]
  - INHALATION THERAPY [None]
  - VISION BLURRED [None]
